FAERS Safety Report 9121824 (Version 1)
Quarter: 2012Q4

REPORT INFORMATION
  Report Type: Spontaneous
  Country: US (occurrence: None)
  Receive Date: 20121026
  Receipt Date: 20121026
  Transmission Date: 20130627
  Serious: No
  Sender: FDA-Public Use
  Company Number: 2012US-004335

PATIENT
  Age: 64 Year
  Sex: Female
  Weight: 67 kg

DRUGS (5)
  1. OMONTYS (PEGINESATIDE) SOLUTION FOR INJECTION [Suspect]
     Indication: NEPHROGENIC ANAEMIA
     Dosage: q 4 weeks
     Route: 042
     Dates: start: 20120804, end: 20120804
  2. EPOGEN [Concomitant]
  3. HEPARIN-PORK [Concomitant]
  4. ZEMPLAR [Concomitant]
  5. VENOFER [Concomitant]

REACTIONS (2)
  - Hypotension [None]
  - Dyspnoea [None]
